FAERS Safety Report 8785658 (Version 1)
Quarter: 2012Q4

REPORT INFORMATION
  Report Type: 
  Country: US (occurrence: US)
  Receive Date: 20120914
  Receipt Date: 20120914
  Transmission Date: 20130627
  Serious: No
  Sender: FDA-Public Use
  Company Number: US-009507513-1209USA003226

PATIENT

DRUGS (2)
  1. IMPLANON [Suspect]
     Indication: MENORRHAGIA
     Dosage: UNK
     Route: 059
     Dates: start: 201205
  2. DAYTRANA [Concomitant]

REACTIONS (1)
  - Device breakage [Unknown]
